FAERS Safety Report 18377311 (Version 1)
Quarter: 2020Q4

REPORT INFORMATION
  Report Type: Spontaneous
  Country: US (occurrence: US)
  Receive Date: 20201013
  Receipt Date: 20201013
  Transmission Date: 20210114
  Serious: Yes (Hospitalization, Other)
  Sender: FDA-Public Use
  Company Number: US-APOTEX-2020AP019635

PATIENT
  Age: 68 Year
  Sex: Male

DRUGS (5)
  1. ACYCLOVIR. [Suspect]
     Active Substance: ACYCLOVIR
     Indication: HERPES ZOSTER
     Dosage: 800 MILLIGRAM (FIVE TIMES A DAY )
     Route: 048
  2. INSULIN [Concomitant]
     Active Substance: INSULIN NOS
     Indication: PRODUCT USED FOR UNKNOWN INDICATION
     Dosage: UNK UNK, BID, 20 UNITS, 70-30 PERCENT
     Route: 065
  3. METOPROLOL SUCCINATE. [Concomitant]
     Active Substance: METOPROLOL SUCCINATE
     Indication: PRODUCT USED FOR UNKNOWN INDICATION
     Dosage: 150 MILLIGRAM, QD
     Route: 048
  4. AMLODIPINE [Concomitant]
     Active Substance: AMLODIPINE BESYLATE
     Indication: PRODUCT USED FOR UNKNOWN INDICATION
     Dosage: 5 MILLIGRAM, QD
     Route: 048
  5. ASPIRIN [ACETYLSALICYLIC ACID] [Concomitant]
     Active Substance: ASPIRIN
     Indication: PRODUCT USED FOR UNKNOWN INDICATION
     Dosage: 81 MILLIGRAM, QD
     Route: 048

REACTIONS (9)
  - Hallucination, auditory [Recovered/Resolved]
  - Hallucination [Recovered/Resolved]
  - Neurotoxicity [Recovered/Resolved]
  - Antiviral drug level above therapeutic [Recovered/Resolved]
  - Incorrect dose administered [Unknown]
  - Agitation [Unknown]
  - Dysarthria [Recovered/Resolved]
  - Encephalopathy [Recovered/Resolved]
  - Confusional state [Recovered/Resolved]
